FAERS Safety Report 10297351 (Version 1)
Quarter: 2014Q3

REPORT INFORMATION
  Report Type: Spontaneous
  Country: AT (occurrence: AT)
  Receive Date: 20140711
  Receipt Date: 20140711
  Transmission Date: 20150326
  Serious: Yes (Death, Other)
  Sender: FDA-Public Use
  Company Number: PHHY2014AT082897

PATIENT
  Age: 61 Year
  Sex: Male

DRUGS (3)
  1. AZACITIDINE. [Suspect]
     Active Substance: AZACITIDINE
     Indication: PANCYTOPENIA
     Dosage: 75 MG/M2, UNK
  2. HYDROXYUREA. [Suspect]
     Active Substance: HYDROXYUREA
  3. IMATINIB [Suspect]
     Active Substance: IMATINIB
     Indication: CHRONIC MYELOID LEUKAEMIA
     Dosage: 400 MG, DAILY

REACTIONS (9)
  - Chronic myeloid leukaemia [Unknown]
  - Neutropenia [Unknown]
  - Chronic myeloid leukaemia transformation [Unknown]
  - Metastases to skin [Unknown]
  - Thrombocytopenia [Unknown]
  - Drug ineffective [Unknown]
  - Death [Fatal]
  - Malignant neoplasm progression [Unknown]
  - Pancytopenia [Unknown]
